FAERS Safety Report 25531862 (Version 1)
Quarter: 2025Q3

REPORT INFORMATION
  Report Type: Spontaneous
  Country: EU (occurrence: EU)
  Receive Date: 20250709
  Receipt Date: 20250709
  Transmission Date: 20251020
  Serious: Yes (Other)
  Sender: BEIGENE
  Company Number: EU-BEIGENE-BGN-2025-010884

PATIENT

DRUGS (4)
  1. BRUKINSA [Suspect]
     Active Substance: ZANUBRUTINIB
     Indication: Mantle cell lymphoma
     Route: 065
  2. BRUKINSA [Suspect]
     Active Substance: ZANUBRUTINIB
     Route: 065
  3. BRUKINSA [Suspect]
     Active Substance: ZANUBRUTINIB
     Route: 065
  4. BRUKINSA [Suspect]
     Active Substance: ZANUBRUTINIB
     Route: 065

REACTIONS (1)
  - Acute myocardial infarction [Unknown]
